FAERS Safety Report 7401819-5 (Version None)
Quarter: 2011Q1

REPORT INFORMATION
  Report Type: 
  Country: None (occurrence: None)
  Receive Date: 20110329
  Receipt Date: 20110317
  Transmission Date: 20110831
  Serious: Yes (Hospitalization)
  Sender: FDA-Public Use
  Company Number: 012638

PATIENT
  Sex: Female
  Weight: 62.5 kg

DRUGS (6)
  1. FOLIC ACID [Concomitant]
  2. DOCUSATE [Concomitant]
  3. OXYCONTIN [Concomitant]
  4. CERTOLIZUMAB PEGOL (CDP870) [Suspect]
     Indication: RHEUMATOID ARTHRITIS
     Dosage: (200 MG 1X/2 WEEKS  SUBCUTANEOUS)
     Route: 058
     Dates: start: 20091130, end: 20100323
  5. METHOTREXATE [Concomitant]
  6. ARTHROTEC [Concomitant]

REACTIONS (9)
  - GAMMA-GLUTAMYLTRANSFERASE INCREASED [None]
  - PNEUMONIA PNEUMOCOCCAL [None]
  - HAEMOGLOBIN DECREASED [None]
  - BRONCHITIS [None]
  - BLOOD ALKALINE PHOSPHATASE INCREASED [None]
  - PYOTHORAX [None]
  - PLEURAL EFFUSION [None]
  - DRUG INEFFECTIVE [None]
  - PNEUMOTHORAX [None]
